FAERS Safety Report 11498441 (Version 1)
Quarter: 2015Q3

REPORT INFORMATION
  Report Type: Spontaneous
  Country: US (occurrence: US)
  Receive Date: 20150911
  Receipt Date: 20150911
  Transmission Date: 20151125
  Serious: Yes (Other)
  Sender: FDA-Public Use
  Company Number: US-TAKEDA-TPA2011A07389

PATIENT

DRUGS (6)
  1. REZULIN [Concomitant]
     Active Substance: TROGLITAZONE
     Dosage: UNK
     Dates: end: 1999
  2. DIABETA                            /00145301/ [Concomitant]
     Dosage: 5 MG, UNK
     Dates: start: 1990, end: 2013
  3. ACTOS [Suspect]
     Active Substance: PIOGLITAZONE HYDROCHLORIDE
     Indication: TYPE 2 DIABETES MELLITUS
     Dosage: 45 MG, UNK
     Route: 048
     Dates: start: 200104, end: 201003
  4. LANTUS [Concomitant]
     Active Substance: INSULIN GLARGINE
     Dosage: 50 MG, UNK
     Dates: end: 2013
  5. ACTOS [Suspect]
     Active Substance: PIOGLITAZONE HYDROCHLORIDE
     Dosage: UNK
     Route: 048
     Dates: end: 201103
  6. METFORMIN [Concomitant]
     Active Substance: METFORMIN HYDROCHLORIDE
     Dosage: 1000 MG, UNK
     Dates: start: 1990, end: 2013

REACTIONS (2)
  - Cardiac failure congestive [Unknown]
  - Bladder cancer [Unknown]

NARRATIVE: CASE EVENT DATE: 2010
